FAERS Safety Report 7437615-2 (Version None)
Quarter: 2011Q2

REPORT INFORMATION
  Report Type: 
  Country: None (occurrence: None)
  Receive Date: 20110426
  Receipt Date: 20110420
  Transmission Date: 20111010
  Serious: Yes (Death, Other)
  Sender: FDA-Public Use
  Company Number: DE-ABBOTT-11P-062-0697902-00

PATIENT
  Sex: Male

DRUGS (13)
  1. HUMIRA [Suspect]
     Indication: RHEUMATOID ARTHRITIS
     Route: 058
     Dates: start: 20060101, end: 20101222
  2. MCP [Concomitant]
     Indication: NAUSEA
  3. NOVALGIN [Concomitant]
     Indication: PRODUCT USED FOR UNKNOWN INDICATION
     Dosage: 120 DROPS DAILY
  4. PREDNISOLONE SODIUM SUCCINATE INJ [Concomitant]
     Indication: PRODUCT USED FOR UNKNOWN INDICATION
     Route: 042
  5. METRONIDAZOLE [Concomitant]
     Indication: PRODUCT USED FOR UNKNOWN INDICATION
     Route: 042
  6. SABDOCAL FORTE [Concomitant]
     Indication: OSTEOPOROSIS PROPHYLAXIS
  7. PANTOZOL [Concomitant]
     Indication: ULCER
  8. PANTOZOL [Concomitant]
     Indication: PROPHYLAXIS
  9. PREDNISOLONE [Concomitant]
     Indication: RHEUMATOID ARTHRITIS
     Dosage: 5 MG DAILY; LONG TERM
     Route: 048
     Dates: start: 20000101, end: 20100101
  10. CEFTRIAXON [Concomitant]
     Indication: PRODUCT USED FOR UNKNOWN INDICATION
     Route: 042
  11. MOVIPREP [Concomitant]
     Indication: CONSTIPATION
  12. TILIDIN [Concomitant]
     Indication: PRODUCT USED FOR UNKNOWN INDICATION
     Dosage: 40 DROPS DAILY
  13. FOLIC ACID [Concomitant]
     Indication: HYPERCHROMIC ANAEMIA

REACTIONS (3)
  - CHOLESTASIS [None]
  - NON-HODGKIN'S LYMPHOMA STAGE IV [None]
  - BILE DUCT STENOSIS [None]
